FAERS Safety Report 24550692 (Version 1)
Quarter: 2024Q4

REPORT INFORMATION
  Report Type: Spontaneous
  Country: DE (occurrence: DE)
  Receive Date: 20241025
  Receipt Date: 20241025
  Transmission Date: 20250115
  Serious: No
  Sender: JAZZ
  Company Number: DE-JAZZ PHARMACEUTICALS-2024-DE-010705

PATIENT
  Sex: Female

DRUGS (2)
  1. DEFITELIO [Suspect]
     Active Substance: DEFIBROTIDE SODIUM
     Indication: Venoocclusive disease
     Dosage: 100 MILLIGRAM/KILOGRAM, QD
  2. DEFITELIO [Suspect]
     Active Substance: DEFIBROTIDE SODIUM
     Dosage: 25 MILLIGRAM/KILOGRAM, QD

REACTIONS (2)
  - Prescribed overdose [Unknown]
  - Therapeutic product effect delayed [Unknown]
